FAERS Safety Report 13668360 (Version 1)
Quarter: 2017Q2

REPORT INFORMATION
  Report Type: Spontaneous
  Country: US (occurrence: US)
  Receive Date: 20170619
  Receipt Date: 20170619
  Transmission Date: 20170830
  Serious: Yes (Disabling)
  Sender: FDA-Public Use
  Company Number: None

PATIENT
  Age: 40 Year
  Sex: Female
  Weight: 67.5 kg

DRUGS (8)
  1. ALPRAZOLAM. [Suspect]
     Active Substance: ALPRAZOLAM
     Indication: INSOMNIA
     Dosage: ?          QUANTITY:1 TABLET(S);?
     Route: 048
  2. PROPANOLOL [Concomitant]
     Active Substance: PROPRANOLOL HYDROCHLORIDE
  3. DAILY MULTIVITAMIN [Concomitant]
     Active Substance: VITAMINS
  4. DIAZEPAM. [Suspect]
     Active Substance: DIAZEPAM
     Indication: PRODUCT USED FOR UNKNOWN INDICATION
     Dosage: ?          QUANTITY:1 CAPSULE(S);?
     Route: 048
  5. PROTONIX [Concomitant]
     Active Substance: PANTOPRAZOLE SODIUM
  6. TAMOXIFEN [Concomitant]
     Active Substance: TAMOXIFEN
  7. RESTASIS [Concomitant]
     Active Substance: CYCLOSPORINE
  8. VITAMIN D [Concomitant]
     Active Substance: CHOLECALCIFEROL

REACTIONS (21)
  - Tremor [None]
  - Dysphagia [None]
  - Fatigue [None]
  - Suicidal ideation [None]
  - Chest discomfort [None]
  - Panic reaction [None]
  - Withdrawal syndrome [None]
  - Paraesthesia [None]
  - Photophobia [None]
  - Dyspnoea [None]
  - Weight decreased [None]
  - Decreased appetite [None]
  - Constipation [None]
  - Tachycardia [None]
  - Tinnitus [None]
  - Nausea [None]
  - Amnesia [None]
  - Anxiety [None]
  - Palpitations [None]
  - Muscle spasms [None]
  - Deafness [None]

NARRATIVE: CASE EVENT DATE: 20150801
